FAERS Safety Report 7055432-2 (Version None)
Quarter: 2010Q4

REPORT INFORMATION
  Report Type: 
  Country: None (occurrence: None)
  Receive Date: 20101021
  Receipt Date: 20101012
  Transmission Date: 20110411
  Serious: Yes (Hospitalization)
  Sender: FDA-Public Use
  Company Number: US-ASTRAZENECA-2010SE32745

PATIENT
  Age: 78 Year
  Sex: Male
  Weight: 94.3 kg

DRUGS (1)
  1. OMEPRAZOLE [Suspect]
     Indication: GASTROOESOPHAGEAL REFLUX DISEASE
     Route: 048
     Dates: end: 20100616

REACTIONS (4)
  - ASTHENIA [None]
  - COUGH [None]
  - SALIVARY HYPERSECRETION [None]
  - SINUSITIS [None]
